FAERS Safety Report 16694098 (Version 2)
Quarter: 2019Q3

REPORT INFORMATION
  Report Type: Spontaneous
  Country: AU (occurrence: AU)
  Receive Date: 20190812
  Receipt Date: 20190930
  Transmission Date: 20191004
  Serious: Yes (Other)
  Sender: FDA-Public Use
  Company Number: AU-GLAXOSMITHKLINE-AU2019APC139749

PATIENT

DRUGS (2)
  1. VOLTAREN EMULGEL [Suspect]
     Active Substance: DICLOFENAC DIETHYLAMINE
     Indication: BACK PAIN
     Dosage: UNK
     Dates: start: 20190704
  2. VOLTAREN EMULGEL [Suspect]
     Active Substance: DICLOFENAC DIETHYLAMINE
     Indication: CHEST PAIN

REACTIONS (9)
  - Nerve injury [Unknown]
  - Product use in unapproved indication [Unknown]
  - Neuralgia [Unknown]
  - Skin exfoliation [Unknown]
  - Application site erythema [Unknown]
  - Blister [Unknown]
  - Application site pain [Unknown]
  - Seizure [Unknown]
  - Skin discolouration [Unknown]

NARRATIVE: CASE EVENT DATE: 20190705
